FAERS Safety Report 19905748 (Version 1)
Quarter: 2021Q4

REPORT INFORMATION
  Report Type: Spontaneous
  Country: US (occurrence: US)
  Receive Date: 20211001
  Receipt Date: 20211001
  Transmission Date: 20220303
  Serious: Yes (unspecified)
  Sender: FDA-Public Use
  Company Number: None

PATIENT
  Age: 33 Year
  Sex: Female
  Weight: 48.9 kg

DRUGS (3)
  1. PACLITAXEL [Suspect]
     Active Substance: PACLITAXEL
     Indication: Breast cancer
     Dosage: ?          OTHER FREQUENCY:ONE TIME INFUSION;
     Route: 041
     Dates: start: 20210928, end: 20210928
  2. SOLU-CORTEF [Concomitant]
     Active Substance: HYDROCORTISONE SODIUM SUCCINATE
     Dates: start: 20210928, end: 20210928
  3. ATIVAN [Concomitant]
     Active Substance: LORAZEPAM
     Dates: start: 20210928, end: 20210928

REACTIONS (5)
  - Palpitations [None]
  - Chest discomfort [None]
  - Flushing [None]
  - Hypersensitivity [None]
  - Infusion related reaction [None]

NARRATIVE: CASE EVENT DATE: 20210928
